FAERS Safety Report 6584943-9 (Version None)
Quarter: 2010Q1

REPORT INFORMATION
  Report Type: 
  Country: None (occurrence: None)
  Receive Date: 20100217
  Receipt Date: 20100108
  Transmission Date: 20100710
  Serious: Yes (Life-Threatening, Hospitalization)
  Sender: FDA-Public Use
  Company Number: JP-SANOFI-AVENTIS-F01200701584

PATIENT
  Age: 64 Year
  Sex: Male
  Weight: 68 kg

DRUGS (5)
  1. CLOPIDOGREL BISULFATE [Suspect]
     Indication: LACUNAR INFARCTION
     Dosage: UNIT DOSE: 75 MG
     Route: 048
     Dates: start: 20070220
  2. CARDENALIN [Concomitant]
     Indication: HYPERTENSION
     Route: 048
     Dates: start: 19990219
  3. COVERSYL /FRA/ [Concomitant]
     Indication: HYPERTENSION
     Route: 048
     Dates: start: 19991217
  4. MAINTATE [Concomitant]
     Indication: HYPERTENSION
     Route: 048
     Dates: start: 20061225
  5. NIVADIL [Concomitant]
     Indication: HYPERTENSION
     Route: 048
     Dates: start: 19990219

REACTIONS (4)
  - ANAEMIA [None]
  - BLOOD ALKALINE PHOSPHATASE INCREASED [None]
  - BLOOD LACTATE DEHYDROGENASE INCREASED [None]
  - LARGE INTESTINE CARCINOMA [None]
